FAERS Safety Report 18957746 (Version 1)
Quarter: 2021Q1

REPORT INFORMATION
  Report Type: Spontaneous
  Country: US (occurrence: US)
  Receive Date: 20210301
  Receipt Date: 20210301
  Transmission Date: 20210420
  Serious: Yes (Life-Threatening, Other)
  Sender: FDA-Public Use
  Company Number: None

PATIENT
  Sex: Male

DRUGS (2)
  1. FLUTICASONE?SALMETROL 250?50MCG [Suspect]
     Active Substance: FLUTICASONE PROPIONATE\SALMETEROL XINAFOATE
     Indication: ASTHMA
     Dosage: ?          OTHER DOSE:250?50UG;OTHER FREQUENCY:1 PUFF BID;?
     Route: 055
     Dates: start: 202012, end: 202101
  2. FLUTICASONE?SALMETROL 250?50MCG [Suspect]
     Active Substance: FLUTICASONE PROPIONATE\SALMETEROL XINAFOATE
     Indication: RHINITIS ALLERGIC
     Dosage: ?          OTHER DOSE:250?50UG;OTHER FREQUENCY:1 PUFF BID;?
     Route: 055
     Dates: start: 202012, end: 202101

REACTIONS (3)
  - Product substitution issue [None]
  - Drug ineffective [None]
  - Condition aggravated [None]
